FAERS Safety Report 4921052-6 (Version None)
Quarter: 2006Q1

REPORT INFORMATION
  Report Type: 
  Country: None (occurrence: None)
  Receive Date: 20060223
  Receipt Date: 20050930
  Transmission Date: 20060701
  Serious: Yes (Hospitalization, Other)
  Sender: FDA-Public Use
  Company Number: PR-MERCK-0510USA01593

PATIENT
  Age: 45 Year
  Sex: Male
  Weight: 82 kg

DRUGS (2)
  1. VIOXX [Suspect]
     Indication: MIGRAINE
     Route: 048
     Dates: start: 20020201, end: 20040304
  2. VIOXX [Suspect]
     Indication: PAIN
     Route: 048
     Dates: start: 20020201, end: 20040304

REACTIONS (6)
  - CEREBROVASCULAR ACCIDENT [None]
  - CHEST PAIN [None]
  - DEPRESSION [None]
  - FATIGUE [None]
  - INSOMNIA [None]
  - MYOCARDIAL INFARCTION [None]
